FAERS Safety Report 6394884-8 (Version None)
Quarter: 2009Q4

REPORT INFORMATION
  Report Type: 
  Country: None (occurrence: None)
  Receive Date: 20091009
  Receipt Date: 20091002
  Transmission Date: 20100525
  Serious: Yes (Other)
  Sender: FDA-Public Use
  Company Number: BR-BRISTOL-MYERS SQUIBB COMPANY-14806889

PATIENT
  Age: 87 Year
  Sex: Female
  Weight: 62 kg

DRUGS (11)
  1. APROVEL TABS [Suspect]
     Indication: HYPERTENSION
     Dosage: INITIAL DOSE 150 MG DOSE INCREASED TO 300 MG IN 2009
     Dates: start: 20070101
  2. CALCIUM CARBONATE + CHOLECALCIFEROL [Concomitant]
     Indication: BONE DISORDER
     Route: 048
  3. FEMARA [Concomitant]
     Indication: NEOPLASM MALIGNANT
     Route: 048
  4. FRESH TEARS [Concomitant]
     Indication: EYE DISORDER
  5. LABIRIN [Concomitant]
     Indication: LABYRINTHITIS
     Dosage: AT NIGHT
     Route: 048
     Dates: start: 20060101
  6. NATURETTI [Concomitant]
     Indication: CONSTIPATION
     Route: 048
  7. OMEPRAZOLE [Concomitant]
     Indication: REGURGITATION
     Dosage: MONDAY TO FRIDAY
     Route: 048
  8. ALENDRONATE SODIUM [Concomitant]
     Indication: BONE DISORDER
     Dosage: SUNDAY
     Route: 048
  9. CLOPIDOGREL BISULFATE [Concomitant]
     Indication: PROTHROMBIN LEVEL DECREASED
     Route: 048
  10. RUPAFIN [Concomitant]
     Indication: HYPERSENSITIVITY
     Route: 048
  11. TEBONIN [Concomitant]
     Route: 048

REACTIONS (3)
  - CORONARY ARTERY OCCLUSION [None]
  - DYSPNOEA [None]
  - FATIGUE [None]
